FAERS Safety Report 5358340-8 (Version None)
Quarter: 2007Q2

REPORT INFORMATION
  Report Type: 
  Country: None (occurrence: None)
  Receive Date: 20070530
  Receipt Date: 20061004
  Transmission Date: 20071010
  Serious: Yes (Hospitalization)
  Sender: FDA-Public Use
  Company Number: US200601003515

PATIENT
  Age: 32 Year
  Sex: Male
  Weight: 61.2 kg

DRUGS (14)
  1. ZYPREXA [Suspect]
     Indication: DEPRESSION
     Dosage: SEE IMAGE
     Route: 048
     Dates: start: 20040421, end: 20050609
  2. REMERON [Concomitant]
  3. LEXAPRO /USA/ (ESCITALOPRAM) [Concomitant]
  4. LAMICTAL [Concomitant]
  5. PERCOCET [Concomitant]
  6. ROBAXIN [Concomitant]
  7. CORTICOSTEROID NOS (CORTICOSTEROID NOS) [Concomitant]
  8. XANAX /USA/ (ALPRAZOLAM) [Concomitant]
  9. ACIPHEX (RAGEPRAZOLE SODIUM) [Concomitant]
  10. GABITRIL /SCH/(TIAGABINE HYDROCHLORIDE) [Concomitant]
  11. AVELOX [Concomitant]
  12. BENTYL [Concomitant]
  13. ASACOL [Concomitant]
  14. HYDROCODONE (HYDROCODONE) [Concomitant]

REACTIONS (1)
  - PANCREATITIS [None]
